FAERS Safety Report 7580248-8 (Version None)
Quarter: 2011Q2

REPORT INFORMATION
  Report Type: 
  Country: None (occurrence: None)
  Receive Date: 20110629
  Receipt Date: 20110620
  Transmission Date: 20111010
  Serious: Yes (Hospitalization)
  Sender: FDA-Public Use
  Company Number: US-AMGEN-USACT2011031472

PATIENT
  Age: 48 Year

DRUGS (7)
  1. PACLITAXEL [Concomitant]
     Indication: BREAST CANCER
     Dosage: 80 MG/M2, UNK
     Route: 042
  2. DOXORUBICIN HCL [Concomitant]
     Indication: BREAST CANCER
  3. BEVACIZUMAB [Concomitant]
     Indication: BREAST CANCER
     Dosage: UNK UNK, BLINDED
     Route: 042
     Dates: start: 20100922
  4. FILGRASTIM [Suspect]
     Indication: BREAST CANCER
     Dosage: 5 A?G/KG, UNK
     Route: 058
     Dates: start: 20100922
  5. CYCLOPHOSPHAMIDE [Concomitant]
     Indication: BREAST CANCER
     Dosage: 600 MG/KG, UNK
     Route: 042
     Dates: start: 20100922
  6. PEGFILGRASTIM [Suspect]
     Indication: BREAST CANCER
     Dosage: 6 MG, UNK
     Route: 058
     Dates: start: 20100922
  7. DOXORUBICIN HCL [Concomitant]
     Dosage: 60 MG/M2, UNK
     Route: 042
     Dates: start: 20100922

REACTIONS (2)
  - ENTEROCOLITIS INFECTIOUS [None]
  - CELLULITIS [None]
